FAERS Safety Report 11855534 (Version 4)
Quarter: 2016Q2

REPORT INFORMATION
  Report Type: Report from Study
  Country: US (occurrence: US)
  Receive Date: 20151221
  Receipt Date: 20160527
  Transmission Date: 20160815
  Serious: Yes (Other)
  Sender: FDA-Public Use
  Company Number: US-AMGEN-USASL2015134273

PATIENT
  Age: 66 Year
  Sex: Female

DRUGS (1)
  1. ENBREL [Suspect]
     Active Substance: ETANERCEPT
     Indication: PRODUCT USED FOR UNKNOWN INDICATION
     Dosage: UNK
     Route: 065

REACTIONS (7)
  - Osteomyelitis [Unknown]
  - Jaw disorder [Unknown]
  - Endodontic procedure [Unknown]
  - Procedural complication [Unknown]
  - Dental implantation [Unknown]
  - Oral surgery [Unknown]
  - Adrenal mass [Unknown]
